FAERS Safety Report 8517532-7 (Version None)
Quarter: 2012Q3

REPORT INFORMATION
  Report Type: 
  Country: None (occurrence: None)
  Receive Date: 20120718
  Receipt Date: 20120709
  Transmission Date: 20120928
  Serious: Yes (Hospitalization)
  Sender: FDA-Public Use
  Company Number: BE-ROCHE-725695

PATIENT
  Sex: Male
  Weight: 92 kg

DRUGS (9)
  1. AVASTIN [Suspect]
     Indication: RENAL CELL CARCINOMA
     Dosage: LAST DOSE PRIOR TO ADVERSE EVENT 17 AUG 2012
     Route: 042
     Dates: start: 20100330, end: 20100830
  2. TRAMADOL HCL [Concomitant]
     Indication: HEADACHE
  3. NEXIUM [Concomitant]
     Indication: OESOPHAGEAL ULCER
  4. COLCHICINE [Concomitant]
     Indication: BLOOD URIC ACID
  5. AVASTIN [Suspect]
     Dosage: CYCLIC
     Route: 042
     Dates: start: 20100928
  6. LIPITOR [Concomitant]
     Indication: HYPERCHOLESTEROLAEMIA
  7. ROFERON-A [Suspect]
     Indication: RENAL CELL CARCINOMA
     Dosage: DOSE: 97, FORM: NOT PROVIDED.
     Route: 058
  8. FELDENE [Concomitant]
     Indication: PAIN
  9. EXFORGE [Concomitant]
     Indication: HYPERTENSION

REACTIONS (1)
  - PANCREATITIS [None]
